FAERS Safety Report 8409231-7 (Version None)
Quarter: 2012Q2

REPORT INFORMATION
  Report Type: 
  Country: None (occurrence: None)
  Receive Date: 20120604
  Receipt Date: 20120522
  Transmission Date: 20120825
  Serious: Yes (Hospitalization)
  Sender: FDA-Public Use
  Company Number: US-ROCHE-1028967

PATIENT
  Sex: Female
  Weight: 46.9 kg

DRUGS (14)
  1. VEMURAFENIB [Suspect]
     Indication: METASTATIC MALIGNANT MELANOMA
     Route: 048
     Dates: start: 20110204, end: 20111005
  2. VEMURAFENIB [Suspect]
     Route: 065
  3. PREVACID [Concomitant]
     Route: 048
  4. IPILIMUMAB [Concomitant]
  5. DEXAMETHASONE [Concomitant]
     Indication: OEDEMA
     Route: 048
  6. KEPPRA [Concomitant]
     Route: 048
  7. ROXICODONE [Concomitant]
     Indication: PAIN
     Dosage: EVERY 4 HOURS AS REQUIRED
  8. LEXAPRO [Concomitant]
     Dosage: ONE TABLET
     Route: 048
  9. DEXAMETHASONE [Concomitant]
     Dosage: ONE 1 MG IN MORNING AND 2 MG IN THE NIGHT.
  10. ONDANSETRON [Concomitant]
     Indication: NAUSEA
     Route: 048
  11. VALIUM [Concomitant]
     Route: 048
  12. ELMARINE [Concomitant]
  13. KYTRIL [Concomitant]
  14. OXYCODONE HYDROCHLORIDE [Concomitant]

REACTIONS (3)
  - TUMOUR HAEMORRHAGE [None]
  - HYPERKERATOSIS [None]
  - NEUTROPHIL COUNT DECREASED [None]
